FAERS Safety Report 5634293-X (Version None)
Quarter: 2008Q1

REPORT INFORMATION
  Report Type: 
  Country: None (occurrence: None)
  Receive Date: 20080131
  Receipt Date: 20070829
  Transmission Date: 20080703
  Serious: Yes (Hospitalization)
  Sender: FDA-Public Use
  Company Number: 160905USA

PATIENT
  Age: 64 Year
  Sex: Female

DRUGS (12)
  1. COPAXONE [Suspect]
     Indication: MULTIPLE SCLEROSIS
     Dosage: 20 MG, SUBCUTANEOUS
     Route: 058
  2. INTERFERON BETA-1A [Suspect]
     Indication: MULTIPLE SCLEROSIS
     Dosage: 18.8571 MG MCG (44 MCG, 3 IN 1 WK), SUBCUTANEOUS
     Route: 058
     Dates: start: 20070328
  3. NAPROXEN SOCIUM [Concomitant]
  4. PREGABALIN [Concomitant]
  5. VALPROATE SODIUM [Concomitant]
  6. SIMVASTATIN [Concomitant]
  7. ALPRAZOLAM [Concomitant]
  8. DILTIAZEM HYDROCHLORIDE [Concomitant]
  9. OXYBUTYNIN CHLORIDE [Concomitant]
  10. WARFARIN SODIUM [Concomitant]
  11. BACLOFEN [Concomitant]
  12. AMANTADINE HCL [Concomitant]

REACTIONS (1)
  - CONVULSION [None]
